FAERS Safety Report 11794966 (Version 3)
Quarter: 2016Q1

REPORT INFORMATION
  Report Type: Spontaneous
  Country: FR (occurrence: FR)
  Receive Date: 20151202
  Receipt Date: 20160210
  Transmission Date: 20160525
  Serious: Yes (Hospitalization)
  Sender: FDA-Public Use
  Company Number: FR-ELI_LILLY_AND_COMPANY-FR201511006993

PATIENT
  Age: 23 Year
  Sex: Male

DRUGS (2)
  1. ZYPADHERA [Suspect]
     Active Substance: OLANZAPINE PAMOATE
     Dosage: 405 MG, UNKNOWN
     Route: 030
     Dates: start: 20151118, end: 20151118
  2. ZYPADHERA [Suspect]
     Active Substance: OLANZAPINE PAMOATE
     Indication: BRIEF PSYCHOTIC DISORDER WITH MARKED STRESSORS
     Dosage: 300 MG, 2/M
     Route: 030
     Dates: start: 20151021

REACTIONS (10)
  - Brief psychotic disorder with marked stressors [Unknown]
  - Bradycardia [Recovered/Resolved]
  - Cardiac murmur [Unknown]
  - Extrasystoles [Unknown]
  - Hypotension [Recovered/Resolved]
  - Pallor [Recovered/Resolved]
  - Tricuspid valve incompetence [Unknown]
  - Syncope [Recovered/Resolved]
  - Arrhythmia [Unknown]
  - Vertigo [Recovered/Resolved]

NARRATIVE: CASE EVENT DATE: 20151118
